FAERS Safety Report 10932915 (Version 1)
Quarter: 2015Q1

REPORT INFORMATION
  Report Type: Spontaneous
  Country: US (occurrence: US)
  Receive Date: 20150320
  Receipt Date: 20150320
  Transmission Date: 20150721
  Serious: Yes (Hospitalization, Other)
  Sender: FDA-Public Use
  Company Number: US-AMGEN-USASP2015025694

PATIENT
  Age: 57 Year
  Sex: Female

DRUGS (1)
  1. ENBREL [Suspect]
     Active Substance: ETANERCEPT
     Indication: RHEUMATOID ARTHRITIS
     Dosage: 50 MG, QWK
     Route: 065
     Dates: start: 20060605

REACTIONS (12)
  - Joint arthroplasty [Recovered/Resolved]
  - Limb operation [Recovered/Resolved]
  - Radius fracture [Unknown]
  - Pain in extremity [Recovered/Resolved]
  - Scratch [Recovered/Resolved]
  - Musculoskeletal pain [Recovered/Resolved]
  - Postoperative wound infection [Recovered/Resolved]
  - Device failure [Not Recovered/Not Resolved]
  - Staphylococcal infection [Recovered/Resolved]
  - Sinusitis [Recovered/Resolved]
  - Peripheral swelling [Recovered/Resolved]
  - Shoulder arthroplasty [Not Recovered/Not Resolved]

NARRATIVE: CASE EVENT DATE: 2006
